FAERS Safety Report 20407173 (Version 2)
Quarter: 2022Q2

REPORT INFORMATION
  Report Type: Spontaneous
  Country: JP (occurrence: JP)
  Receive Date: 20220131
  Receipt Date: 20220420
  Transmission Date: 20220721
  Serious: Yes (Death, Other)
  Sender: FDA-Public Use
  Company Number: JP-JAZZ-2022-JP-001279

PATIENT
  Age: 68 Year
  Sex: Female
  Weight: 43.6 kg

DRUGS (2)
  1. DEFITELIO [Suspect]
     Active Substance: DEFIBROTIDE SODIUM
     Indication: Venoocclusive liver disease
     Dosage: 25 MG/KG/24 HOURS
     Route: 042
     Dates: start: 20210805, end: 20210825
  2. DEFITELIO [Suspect]
     Active Substance: DEFIBROTIDE SODIUM
     Dosage: 25 MG/KG/24 HOURS
     Route: 042
     Dates: start: 20210830, end: 20210914

REACTIONS (3)
  - Cerebral haemorrhage [Not Recovered/Not Resolved]
  - Respiratory failure [Unknown]
  - Lymphoma [Fatal]

NARRATIVE: CASE EVENT DATE: 20160101
